FAERS Safety Report 6920601-6 (Version None)
Quarter: 2010Q3

REPORT INFORMATION
  Report Type: 
  Country: None (occurrence: None)
  Receive Date: 20100812
  Receipt Date: 20100803
  Transmission Date: 20110219
  Serious: Yes (Hospitalization, Disabling)
  Sender: FDA-Public Use
  Company Number: JP-BRISTOL-MYERS SQUIBB COMPANY-15137193

PATIENT
  Age: 65 Year
  Sex: Male
  Weight: 48 kg

DRUGS (10)
  1. ABILIFY [Suspect]
     Indication: ANGER
     Dosage: 24MR7-19MR8;24MG,20MR-30AR8,18FB-23FB10;12MG,24FB-27FB10;24MG,28FB-4MR10,24MY-26MY10;12MG,27-28MY10
     Route: 048
     Dates: start: 20070324
  2. ABILIFY [Suspect]
     Indication: HYPERPHAGIA
     Dosage: 24MR7-19MR8;24MG,20MR-30AR8,18FB-23FB10;12MG,24FB-27FB10;24MG,28FB-4MR10,24MY-26MY10;12MG,27-28MY10
     Route: 048
     Dates: start: 20070324
  3. ABILIFY [Suspect]
     Indication: AGGRESSION
     Dosage: 24MR7-19MR8;24MG,20MR-30AR8,18FB-23FB10;12MG,24FB-27FB10;24MG,28FB-4MR10,24MY-26MY10;12MG,27-28MY10
     Route: 048
     Dates: start: 20070324
  4. ABILIFY [Suspect]
     Indication: AGITATION
     Dosage: 24MR7-19MR8;24MG,20MR-30AR8,18FB-23FB10;12MG,24FB-27FB10;24MG,28FB-4MR10,24MY-26MY10;12MG,27-28MY10
     Route: 048
     Dates: start: 20070324
  5. LEVOTOMIN [Concomitant]
     Dosage: TABS
     Dates: end: 20100527
  6. TEGRETOL [Concomitant]
     Dosage: TABS
     Dates: start: 20070324, end: 20100528
  7. CONTOMIN [Concomitant]
     Dates: start: 20070324, end: 20100304
  8. PROMAC [Concomitant]
     Dosage: FORM: TABS
     Dates: start: 20080723, end: 20100528
  9. NEUROVITAN [Concomitant]
     Dosage: FORM: TABLET
     Dates: start: 20100401, end: 20100528
  10. HORIZON [Concomitant]
     Dosage: FORM: TABLET
     Dates: start: 20100524, end: 20100526

REACTIONS (1)
  - MUSCULAR WEAKNESS [None]
